FAERS Safety Report 21978680 (Version 1)
Quarter: 2023Q1

REPORT INFORMATION
  Report Type: Spontaneous
  Country: CN (occurrence: CN)
  Receive Date: 20230210
  Receipt Date: 20230210
  Transmission Date: 20230417
  Serious: Yes (Hospitalization)
  Sender: FDA-Public Use
  Company Number: CN-Merck Healthcare KGaA-9380503

PATIENT
  Age: 63 Year
  Sex: Male
  Weight: 64 kg

DRUGS (5)
  1. ERBITUX [Suspect]
     Active Substance: CETUXIMAB
     Indication: Rectal neoplasm
     Dosage: 800 MG, DAILY
     Route: 041
     Dates: start: 20221220, end: 20221220
  2. IRINOTECAN HYDROCHLORIDE [Suspect]
     Active Substance: IRINOTECAN HYDROCHLORIDE
     Indication: Rectal neoplasm
     Dosage: 0.3 G, DAILY
     Route: 041
     Dates: start: 20221220, end: 20221220
  3. LEUCOVORIN CALCIUM [Suspect]
     Active Substance: LEUCOVORIN CALCIUM
     Indication: Rectal neoplasm
     Dosage: 0.66 G, DAILY
     Route: 041
     Dates: start: 20221220, end: 20221220
  4. FLUOROURACIL [Suspect]
     Active Substance: FLUOROURACIL
     Indication: Rectal neoplasm
     Dosage: 0.675 G, DAILY
     Route: 042
     Dates: start: 20221220, end: 20221220
  5. FLUOROURACIL [Suspect]
     Active Substance: FLUOROURACIL
     Indication: Rectal neoplasm
     Dosage: 2 G, DAILY
     Route: 065
     Dates: start: 20221220, end: 20221221

REACTIONS (1)
  - Granulocyte count decreased [Unknown]

NARRATIVE: CASE EVENT DATE: 20230102
